FAERS Safety Report 8248793-X (Version None)
Quarter: 2012Q1

REPORT INFORMATION
  Report Type: 
  Country: None (occurrence: None)
  Receive Date: 20120331
  Receipt Date: 20120329
  Transmission Date: 20120608
  Serious: Yes (Life-Threatening, Hospitalization, Other)
  Sender: FDA-Public Use
  Company Number: PHEH2011US012217

PATIENT
  Sex: Female

DRUGS (5)
  1. GILENYA [Suspect]
     Indication: MULTIPLE SCLEROSIS
     Dosage: 0.5 MG, QD
     Route: 048
     Dates: start: 20110707, end: 20111215
  2. CYMBALTA [Concomitant]
     Indication: DEPRESSION
     Dosage: 60 UKN, QD
     Route: 048
     Dates: start: 20111001
  3. BENAZEPRIL HYDROCHLORIDE [Concomitant]
     Indication: HYPERTENSION
     Dosage: 20 UKN, QD
     Route: 048
     Dates: start: 20080101
  4. ASPIRIN [Concomitant]
     Indication: CARDIAC DISORDER
     Dosage: 81 UKN, QD
     Route: 048
     Dates: start: 20080101
  5. PROTONIX [Concomitant]
     Indication: GASTROOESOPHAGEAL REFLUX DISEASE
     Dosage: 40 UKN, QD
     Route: 048
     Dates: start: 20100101

REACTIONS (2)
  - PHOTOPSIA [None]
  - CONVULSION [None]
